FAERS Safety Report 5567096-5 (Version None)
Quarter: 2007Q4

REPORT INFORMATION
  Report Type: 
  Country: None (occurrence: None)
  Receive Date: 20071219
  Receipt Date: 20071024
  Transmission Date: 20080405
  Serious: Yes (Other)
  Sender: FDA-Public Use
  Company Number: US-PURDUE-USA_2007_0030212

PATIENT
  Age: 42 None
  Sex: Male
  Weight: 82 kg

DRUGS (1)
  1. OXYCONTIN [Suspect]
     Indication: PAIN
     Dosage: 80 MG, BID
     Route: 048
     Dates: start: 19990511, end: 20030703

REACTIONS (11)
  - BACK PAIN [None]
  - DIARRHOEA [None]
  - DRUG DEPENDENCE [None]
  - HEPATITIS C [None]
  - HOT FLUSH [None]
  - HYPERHIDROSIS [None]
  - MUSCLE SPASMS [None]
  - MYALGIA [None]
  - NAUSEA [None]
  - PAIN IN EXTREMITY [None]
  - VOMITING [None]
